FAERS Safety Report 7875144-2 (Version None)
Quarter: 2011Q4

REPORT INFORMATION
  Report Type: 
  Country: None (occurrence: None)
  Receive Date: 20111031
  Receipt Date: 20111018
  Transmission Date: 20120403
  Serious: No
  Sender: FDA-Public Use
  Company Number: US-BIOGENIDEC-2011BI039848

PATIENT
  Sex: Male

DRUGS (2)
  1. AVONEX [Suspect]
     Indication: MULTIPLE SCLEROSIS
     Route: 030
     Dates: start: 20070907
  2. AVONEX [Suspect]
     Route: 030
     Dates: start: 20050621, end: 20060728

REACTIONS (3)
  - DIZZINESS [None]
  - STRESS [None]
  - COGNITIVE DISORDER [None]
